FAERS Safety Report 23804421 (Version 2)
Quarter: 2024Q2

REPORT INFORMATION
  Report Type: Report from Study
  Country: US (occurrence: US)
  Receive Date: 20240501
  Receipt Date: 20240523
  Transmission Date: 20240716
  Serious: Yes (Other)
  Sender: FDA-Public Use
  Company Number: US-BAUSCH-BL-2024-006654

PATIENT
  Sex: Female

DRUGS (2)
  1. WELLBUTRIN XL [Suspect]
     Active Substance: BUPROPION HYDROCHLORIDE
     Indication: Depression
     Route: 065
     Dates: start: 2009, end: 2013
  2. XANAX [Concomitant]
     Active Substance: ALPRAZOLAM
     Indication: Anxiety

REACTIONS (18)
  - Polycystic ovarian syndrome [Unknown]
  - Lipoedema [Unknown]
  - Disease recurrence [Not Recovered/Not Resolved]
  - Hair disorder [Unknown]
  - Arthropathy [Unknown]
  - General physical health deterioration [Not Recovered/Not Resolved]
  - Angiopathy [Unknown]
  - Weight increased [Recovering/Resolving]
  - Stress [Not Recovered/Not Resolved]
  - Acne [Unknown]
  - Pain [Not Recovered/Not Resolved]
  - Fibromyalgia [Unknown]
  - Urticaria chronic [Unknown]
  - Allergic reaction to excipient [Unknown]
  - Inability to afford medication [Unknown]
  - Insurance issue [Unknown]
  - Therapeutic response unexpected [Unknown]
  - Product substitution issue [Unknown]
